FAERS Safety Report 18944966 (Version 1)
Quarter: 2021Q1

REPORT INFORMATION
  Report Type: Spontaneous
  Country: JP (occurrence: JP)
  Receive Date: 20210226
  Receipt Date: 20210226
  Transmission Date: 20210420
  Serious: Yes (Death, Other)
  Sender: FDA-Public Use
  Company Number: JP-GLAXOSMITHKLINE-JP2021052428

PATIENT
  Sex: Female

DRUGS (1)
  1. ZOVIRAX [Suspect]
     Active Substance: ACYCLOVIR
     Indication: HERPES VIRUS INFECTION
     Dosage: UNK
     Route: 048

REACTIONS (6)
  - Death [Fatal]
  - Disseminated intravascular coagulation [Unknown]
  - Cytogenetic abnormality [Unknown]
  - Staphylococcal infection [Unknown]
  - Product use issue [Unknown]
  - Leukaemia [Unknown]
